FAERS Safety Report 9163152 (Version 1)
Quarter: 2013Q1

REPORT INFORMATION
  Report Type: Spontaneous
  Country: DK (occurrence: None)
  Receive Date: 20130227
  Receipt Date: 20130227
  Transmission Date: 20140127
  Serious: Yes (Life-Threatening, Hospitalization)
  Sender: FDA-Public Use
  Company Number: 2013MA001344

PATIENT
  Age: 74 Year
  Sex: Female

DRUGS (7)
  1. GEMCITABINE HYDROCHLORIDE [Suspect]
     Indication: BRONCHIAL NEOPLASM
     Dosage: 1000 MG/M**2; IV
     Route: 042
     Dates: start: 20121129, end: 20121129
  2. BENSEDIN [Concomitant]
  3. RANISAN [Concomitant]
  4. LEMOD [Concomitant]
  5. ONDASAN [Concomitant]
  6. SODIUM CHLORIDE [Concomitant]
  7. CARBOPLATIN [Concomitant]

REACTIONS (3)
  - Excoriation [None]
  - Urticaria [None]
  - Pruritus [None]
